FAERS Safety Report 13607630 (Version 2)
Quarter: 2017Q2

REPORT INFORMATION
  Report Type: Spontaneous
  Country: US (occurrence: US)
  Receive Date: 20170602
  Receipt Date: 20170605
  Transmission Date: 20170830
  Serious: No
  Sender: FDA-Public Use
  Company Number: US-PFIZER INC-2016207062

PATIENT
  Age: 51 Year
  Sex: Female

DRUGS (1)
  1. PROMETHAZINE HCL [Suspect]
     Active Substance: PROMETHAZINE HYDROCHLORIDE

REACTIONS (3)
  - Drug intolerance [Unknown]
  - Psychomotor hyperactivity [Unknown]
  - Drug hypersensitivity [Unknown]
